FAERS Safety Report 16509839 (Version 2)
Quarter: 2019Q3

REPORT INFORMATION
  Report Type: Spontaneous
  Country: US (occurrence: US)
  Receive Date: 20190701
  Receipt Date: 20190704
  Transmission Date: 20191004
  Serious: No
  Sender: FDA-Public Use
  Company Number: US-TEVA-2019-US-1067999

PATIENT
  Sex: Male

DRUGS (1)
  1. ACTAVIS TESTOSTERONE GEL [Suspect]
     Active Substance: TESTOSTERONE
     Indication: BLOOD TESTOSTERONE ABNORMAL

REACTIONS (5)
  - Drug ineffective [Unknown]
  - Blood testosterone decreased [Unknown]
  - Product substitution issue [Unknown]
  - Influenza like illness [Unknown]
  - Asthenia [Recovered/Resolved]
